FAERS Safety Report 6056368-6 (Version None)
Quarter: 2009Q1

REPORT INFORMATION
  Report Type: 
  Country: None (occurrence: None)
  Receive Date: 20090129
  Receipt Date: 20090119
  Transmission Date: 20090719
  Serious: Yes (Life-Threatening)
  Sender: FDA-Public Use
  Company Number: CA-WATSON-2009-00252

PATIENT
  Age: 22 Month
  Sex: Female
  Weight: 10.6 kg

DRUGS (4)
  1. CAPTOPRIL (WATSON LABORATORIES) [Suspect]
     Indication: CARDIOMYOPATHY
     Dosage: 10 MG, TID
  2. CARVEDILOL (WATSON LABORATORIES) [Suspect]
     Indication: CARDIOMYOPATHY
     Dosage: 4.5 MG, BID
  3. SEVOFLURANE [Suspect]
     Indication: ANAESTHESIA
     Dosage: 3 % IN OXYGEN AND AIR, SINGLE
  4. REMIFENTANIL [Suspect]
     Indication: ANAESTHESIA
     Dosage: 1 UG/KG, SINGLE

REACTIONS (2)
  - CIRCULATORY COLLAPSE [None]
  - ELECTROMECHANICAL DISSOCIATION [None]
